FAERS Safety Report 4743810-3 (Version None)
Quarter: 2005Q3

REPORT INFORMATION
  Report Type: 
  Country: None (occurrence: None)
  Receive Date: 20050809
  Receipt Date: 20050518
  Transmission Date: 20060218
  Serious: Yes (Hospitalization)
  Sender: FDA-Public Use
  Company Number: 2005FR-00174

PATIENT
  Age: 70 Year
  Sex: Female

DRUGS (10)
  1. ASPIRIN [Suspect]
     Indication: MYOCARDIAL INFARCTION
     Dosage: 300 MG SINGLE
     Route: 048
     Dates: start: 20041118, end: 20041118
  2. WARFARIN SODIUM [Suspect]
     Indication: ATRIAL FIBRILLATION
     Dosage: ACCORDING TO INR
     Route: 048
     Dates: end: 20041101
  3. PROPRANOLOL [Concomitant]
  4. ATORVASTATIN [Concomitant]
  5. AMLODIPINE [Concomitant]
  6. FUROSEMIDE [Concomitant]
  7. VALSARTAN [Concomitant]
  8. CODEINE [Concomitant]
  9. THYROXINE [Concomitant]
  10. OMEPRAZOLE [Concomitant]

REACTIONS (4)
  - CHEST PAIN [None]
  - GASTROINTESTINAL HAEMORRHAGE [None]
  - MYOCARDIAL INFARCTION [None]
  - PAIN [None]
